FAERS Safety Report 11239924 (Version 1)
Quarter: 2015Q3

REPORT INFORMATION
  Report Type: Spontaneous
  Country: US (occurrence: US)
  Receive Date: 20150706
  Receipt Date: 20150706
  Transmission Date: 20151125
  Serious: Yes (Hospitalization)
  Sender: FDA-Public Use
  Company Number: US-JNJFOC-20150700737

PATIENT
  Age: 63 Year
  Sex: Male

DRUGS (21)
  1. ATORVASTATIN [Concomitant]
     Active Substance: ATORVASTATIN
  2. UNKNOWN MEDICATION [Concomitant]
     Active Substance: UNSPECIFIED INGREDIENT
  3. ASPIRIN. [Concomitant]
     Active Substance: ASPIRIN
  4. ISOSORBIDE. [Concomitant]
     Active Substance: ISOSORBIDE
  5. CALCITRIOL. [Concomitant]
     Active Substance: CALCITRIOL
  6. OMEPRAZOLE. [Concomitant]
     Active Substance: OMEPRAZOLE
  7. PHOSLO [Concomitant]
     Active Substance: CALCIUM ACETATE
  8. ENTECAVIR. [Concomitant]
     Active Substance: ENTECAVIR
  9. IMBRUVICA [Suspect]
     Active Substance: IBRUTINIB
     Indication: LYMPHOMA
     Route: 048
     Dates: start: 20150621
  10. TRYPSIN [Concomitant]
     Active Substance: TRYPSIN
  11. ALLOPURINOL. [Concomitant]
     Active Substance: ALLOPURINOL
  12. SPIRONOLACTONE. [Concomitant]
     Active Substance: SPIRONOLACTONE
  13. VITAMIN D [Concomitant]
     Active Substance: CHOLECALCIFEROL
  14. CARVEDILOL. [Concomitant]
     Active Substance: CARVEDILOL
  15. FUROSEMIDE. [Concomitant]
     Active Substance: FUROSEMIDE
  16. MAGNESIUM [Concomitant]
     Active Substance: MAGNESIUM
  17. VALGANCICLOVIR [Concomitant]
     Active Substance: VALGANCICLOVIR
  18. LEVOTHYROXINE. [Concomitant]
     Active Substance: LEVOTHYROXINE
  19. MESALAMINE. [Concomitant]
     Active Substance: MESALAMINE
  20. CASTOR OIL. [Concomitant]
     Active Substance: CASTOR OIL
  21. HYDRALAZINE [Concomitant]
     Active Substance: HYDRALAZINE HYDROCHLORIDE

REACTIONS (8)
  - Haemoglobin decreased [Unknown]
  - Haematochezia [Unknown]
  - Off label use [Unknown]
  - Diarrhoea [Unknown]
  - Blood creatinine increased [Unknown]
  - Clostridium difficile infection [Unknown]
  - Blood magnesium decreased [Unknown]
  - Blood potassium decreased [Unknown]

NARRATIVE: CASE EVENT DATE: 20150623
